FAERS Safety Report 4432214-9 (Version None)
Quarter: 2004Q3

REPORT INFORMATION
  Report Type: 
  Country: None (occurrence: None)
  Receive Date: 20040825
  Receipt Date: 20040816
  Transmission Date: 20050211
  Serious: Yes (Life-Threatening, Hospitalization)
  Sender: FDA-Public Use
  Company Number: ZA-ROCHE-377894

PATIENT
  Age: 76 Year
  Sex: Female
  Weight: 70 kg

DRUGS (2)
  1. IBANDRONIC ACID [Suspect]
     Indication: OSTEOPOROSIS POSTMENOPAUSAL
     Dosage: ROUTE, DOSE AND FREQUENCY BLINDED. ORAL STUDY MEDIATION STARTED ON 09 DEC 2002.
     Route: 065
  2. MELOXICAM [Concomitant]
     Dates: start: 20010615

REACTIONS (2)
  - HAEMOGLOBIN DECREASED [None]
  - MELAENA [None]
